FAERS Safety Report 5903316-2 (Version None)
Quarter: 2008Q3

REPORT INFORMATION
  Report Type: 
  Country: None (occurrence: None)
  Receive Date: 20080930
  Receipt Date: 20080919
  Transmission Date: 20090109
  Serious: Yes (Other)
  Sender: FDA-Public Use
  Company Number: B0538932A

PATIENT
  Sex: Male

DRUGS (2)
  1. FLIXOTIDE [Suspect]
     Indication: ASTHMA
     Dosage: 100MCG TWICE PER DAY
     Route: 065
     Dates: start: 20070901, end: 20080907
  2. FLIXOTIDE [Suspect]
     Dosage: 150MCG TWICE PER DAY
     Route: 065
     Dates: start: 20080908

REACTIONS (4)
  - APHONIA [None]
  - COUGH [None]
  - CYSTIC FIBROSIS [None]
  - WHEEZING [None]
